FAERS Safety Report 23522521 (Version 1)
Quarter: 2024Q1

REPORT INFORMATION
  Report Type: Spontaneous
  Country: US (occurrence: None)
  Receive Date: 20240213
  Receipt Date: 20240213
  Transmission Date: 20240410
  Serious: Yes (Hospitalization)
  Sender: FDA-Public Use
  Company Number: None

PATIENT
  Age: 45 Year
  Sex: Male

DRUGS (10)
  1. ZENPEP [Suspect]
     Active Substance: PANCRELIPASE AMYLASE\PANCRELIPASE LIPASE\PANCRELIPASE PROTEASE
     Indication: Cystic fibrosis lung
     Dosage: 10000-32000 UNIR OAL??TAKE 8 CAPSULES WITH MEALS AND 5-6 CAPSULES WITH SNACKS. SWALLOW CAPSULES WHOL
     Route: 048
     Dates: start: 20150421
  2. ZENPEP [Suspect]
     Active Substance: PANCRELIPASE AMYLASE\PANCRELIPASE LIPASE\PANCRELIPASE PROTEASE
     Dosage: OTHER STRENGTH : 10000 U;?OTHER QUANTITY : 10000-32000 UNIT;?OTHER FREQUENCY : 5-6 CAP WITH SNACK;?
     Route: 048
  3. ALBUTEROL 0.883% INH SOL [Concomitant]
  4. CYPROHEPTAD SYP [Concomitant]
  5. DOXEPIN HCL [Concomitant]
     Active Substance: DOXEPIN HYDROCHLORIDE
  6. LEVALBUTEROL TAR HFA [Concomitant]
  7. PREDNISONE SOL [Concomitant]
  8. SYMBICORT [Concomitant]
     Active Substance: BUDESONIDE\FORMOTEROL FUMARATE DIHYDRATE
  9. TAMIFLU [Concomitant]
     Active Substance: OSELTAMIVIR PHOSPHATE
  10. VALSARTAN [Concomitant]
     Active Substance: VALSARTAN

REACTIONS (1)
  - Infective pulmonary exacerbation of cystic fibrosis [None]

NARRATIVE: CASE EVENT DATE: 20240131
